FAERS Safety Report 7653914-3 (Version None)
Quarter: 2011Q3

REPORT INFORMATION
  Report Type: 
  Country: None (occurrence: None)
  Receive Date: 20110803
  Receipt Date: 20110725
  Transmission Date: 20111222
  Serious: Yes (Hospitalization, Other)
  Sender: FDA-Public Use
  Company Number: US-ELI_LILLY_AND_COMPANY-US201107007291

PATIENT
  Sex: Female

DRUGS (2)
  1. PREDNISONE [Concomitant]
  2. HUMALOG [Suspect]
     Indication: DIABETES MELLITUS
     Dosage: UNK

REACTIONS (7)
  - PANCREAS TRANSPLANT [None]
  - RENAL DISORDER [None]
  - DEPRESSED LEVEL OF CONSCIOUSNESS [None]
  - SKIN DISORDER [None]
  - WEIGHT INCREASED [None]
  - PARKINSON'S DISEASE [None]
  - HOSPITALISATION [None]
